FAERS Safety Report 4934261-7 (Version None)
Quarter: 2006Q1

REPORT INFORMATION
  Report Type: 
  Country: None (occurrence: None)
  Receive Date: 20060303
  Receipt Date: 20060224
  Transmission Date: 20060701
  Serious: Yes (Life-Threatening, Hospitalization, Disabling)
  Sender: FDA-Public Use
  Company Number: 2006027426

PATIENT
  Age: 70 Year
  Sex: Male
  Weight: 49 kg

DRUGS (10)
  1. ATORVASTATIN CALCIUM [Suspect]
     Indication: HYPERCHOLESTEROLAEMIA
     Dosage: 80 MG (80 MG, DAILY INTERVAL: EVERY DAY), ORAL
     Route: 048
     Dates: start: 20030324, end: 20060131
  2. CYCLOSPORINE [Suspect]
     Indication: ILL-DEFINED DISORDER
     Dosage: 50 MG (25 MG, 2 IN 1 D)
     Dates: start: 20050928
  3. PREDNISOLONE [Concomitant]
  4. DOXAZOSIN [Concomitant]
  5. LATANOPROST [Concomitant]
  6. SENOKOT [Concomitant]
  7. LACTULOSE [Concomitant]
  8. AZATHIOPRINE [Concomitant]
  9. PARACETAMOL [Concomitant]
  10. LANSOPRAZOLE [Concomitant]

REACTIONS (6)
  - COMPLICATIONS OF TRANSPLANTED KIDNEY [None]
  - DIALYSIS [None]
  - DRUG LEVEL INCREASED [None]
  - RENAL FAILURE ACUTE [None]
  - RHABDOMYOLYSIS [None]
  - TRANSPLANT FAILURE [None]
